FAERS Safety Report 25280910 (Version 2)
Quarter: 2025Q2

REPORT INFORMATION
  Report Type: Spontaneous
  Country: US (occurrence: US)
  Receive Date: 20250508
  Receipt Date: 20250528
  Transmission Date: 20250717
  Serious: No
  Sender: BAUSCH AND LOMB
  Company Number: US-BAUSCHBL-2025BNL007672

PATIENT
  Age: 54 Year
  Sex: Female

DRUGS (4)
  1. XIIDRA [Suspect]
     Active Substance: LIFITEGRAST
     Indication: Product used for unknown indication
     Dosage: 1 DROP BID
     Route: 065
     Dates: start: 20230816
  2. REFRESH FREE [Concomitant]
     Indication: Product used for unknown indication
     Dosage: QD TO BID OU
     Route: 065
  3. CAMBIA [Concomitant]
     Active Substance: DICLOFENAC POTASSIUM
     Indication: Product used for unknown indication
     Route: 065
  4. COMPAZINE [Concomitant]
     Active Substance: PROCHLORPERAZINE MALEATE
     Indication: Product used for unknown indication
     Route: 065

REACTIONS (4)
  - Eyelid margin crusting [Unknown]
  - Eye irritation [Unknown]
  - Product odour abnormal [Unknown]
  - Product quality issue [Unknown]
